FAERS Safety Report 17369279 (Version 1)
Quarter: 2020Q1

REPORT INFORMATION
  Report Type: Spontaneous
  Country: US (occurrence: US)
  Receive Date: 20200203
  Receipt Date: 20200203
  Transmission Date: 20200409
  Serious: No
  Sender: FDA-Public Use
  Company Number: None

PATIENT
  Age: 31 Year
  Weight: 69.75 kg

DRUGS (1)
  1. ROMPE PECHO MAX MULTI SYMPTOMS [Suspect]
     Active Substance: ACETAMINOPHEN\DEXTROMETHORPHAN HYDROBROMIDE\GUAIFENESIN\PHENYLEPHRINE HYDROCHLORIDE
     Indication: OROPHARYNGEAL PAIN
     Route: 048
     Dates: start: 20200127, end: 20200203

REACTIONS (3)
  - Diarrhoea [None]
  - Abdominal pain upper [None]
  - Rash [None]

NARRATIVE: CASE EVENT DATE: 20200127
